FAERS Safety Report 9443713 (Version 1)
Quarter: 2013Q3

REPORT INFORMATION
  Report Type: Report from Study
  Country: AU (occurrence: AU)
  Receive Date: 20130806
  Receipt Date: 20130806
  Transmission Date: 20140515
  Serious: Yes (Other)
  Sender: FDA-Public Use
  Company Number: PHHY2013AU066764

PATIENT
  Age: 93 Year
  Sex: Female
  Weight: 60 kg

DRUGS (14)
  1. ACLASTA [Suspect]
     Indication: OSTEOPOROSIS
     Dosage: 5 MG
     Route: 042
     Dates: start: 20120703
  2. ASTRIX [Concomitant]
     Dosage: 100 MG, EVERY MORNING
     Route: 048
     Dates: start: 20130308
  3. LIPITOR [Concomitant]
     Dosage: 20 MG, UNK
     Route: 048
     Dates: start: 20130308
  4. SLOW-K [Concomitant]
     Dosage: EVERY MORNING
     Route: 048
     Dates: start: 20130308, end: 20130613
  5. CIAZIL [Concomitant]
     Dosage: 20 MG, EVERY MORNING
     Route: 048
     Dates: start: 20130308
  6. LASIX [Concomitant]
     Dosage: 40 MG, UNK
     Dates: start: 20130308
  7. UREA [Concomitant]
     Dosage: 10 %, EVERY MORNING
     Route: 061
     Dates: start: 20130308
  8. VIT D [Concomitant]
     Dosage: 1000 IU, EVERY MORNING
     Route: 048
     Dates: start: 20130308
  9. ALEPAM [Concomitant]
     Dosage: 15 MG, EVERY NIGHT
     Route: 048
     Dates: start: 20130308
  10. PANADOL OSTEO [Concomitant]
     Dosage: TID
     Route: 048
     Dates: start: 20130527
  11. CHLORVESCENT [Concomitant]
     Dosage: EVERY MORNING
     Dates: start: 20130613
  12. PANAMAX [Concomitant]
     Dosage: QID
     Route: 048
     Dates: start: 20130308, end: 20130531
  13. VOLTAREN ^CIBA-GEIGY^ [Concomitant]
     Dosage: TID
     Route: 061
     Dates: start: 20130315
  14. PNEUMOCOCCAL VACCINE [Concomitant]
     Dosage: UNK UKN, UNK
     Dates: start: 20130327

REACTIONS (2)
  - Blood bicarbonate increased [Unknown]
  - Nausea [Recovered/Resolved]
